FAERS Safety Report 21615532 (Version 1)
Quarter: 2022Q4

REPORT INFORMATION
  Report Type: Spontaneous
  Country: US (occurrence: None)
  Receive Date: 20221117
  Receipt Date: 20221117
  Transmission Date: 20230113
  Serious: Yes (Hospitalization)
  Sender: FDA-Public Use
  Company Number: None

PATIENT
  Age: 88 Year
  Sex: Male
  Weight: 77.11 kg

DRUGS (3)
  1. TRELSTAR [Suspect]
     Active Substance: TRIPTORELIN PAMOATE
     Indication: Prostate cancer
     Dosage: OTHER FREQUENCY : Q3MONTHS;?
     Route: 048
     Dates: start: 201801
  2. HYTRIN [Concomitant]
     Active Substance: TERAZOSIN HYDROCHLORIDE
  3. PROSCAR [Concomitant]
     Active Substance: FINASTERIDE

REACTIONS (3)
  - Urinary retention [None]
  - Urinary tract infection [None]
  - Device related sepsis [None]
